FAERS Safety Report 8047049-8 (Version None)
Quarter: 2012Q1

REPORT INFORMATION
  Report Type: 
  Country: None (occurrence: None)
  Receive Date: 20120116
  Receipt Date: 20120109
  Transmission Date: 20120608
  Serious: Yes (Other)
  Sender: FDA-Public Use
  Company Number: DE-JNJFOC-20111203545

PATIENT
  Sex: Female

DRUGS (1)
  1. HALDOL [Suspect]
     Indication: PSYCHOTIC DISORDER
     Route: 048
     Dates: end: 20111206

REACTIONS (2)
  - MATERNAL EXPOSURE DURING PREGNANCY [None]
  - PSYCHOTIC DISORDER [None]
